FAERS Safety Report 13456255 (Version 1)
Quarter: 2017Q2

REPORT INFORMATION
  Report Type: Spontaneous
  Country: IN (occurrence: IN)
  Receive Date: 20170419
  Receipt Date: 20170419
  Transmission Date: 20170830
  Serious: Yes (Other)
  Sender: FDA-Public Use
  Company Number: IN-PFIZER INC-2017159474

PATIENT
  Age: 73 Year
  Sex: Female

DRUGS (2)
  1. LETROZOLE. [Concomitant]
     Active Substance: LETROZOLE
     Dosage: UNK
  2. PALBACE [Suspect]
     Active Substance: PALBOCICLIB
     Indication: BREAST CANCER METASTATIC
     Dosage: 125 MG, 1X/DAY
     Route: 048
     Dates: start: 20170215

REACTIONS (14)
  - Hunger [Unknown]
  - Cerebral thrombosis [Unknown]
  - Fatigue [Unknown]
  - Nausea [Unknown]
  - Decreased appetite [Unknown]
  - Anxiety [Unknown]
  - Dizziness [Unknown]
  - Pain [Unknown]
  - Loss of personal independence in daily activities [Unknown]
  - Lung disorder [Unknown]
  - Dysphagia [Unknown]
  - Asthenia [Unknown]
  - Hyperchlorhydria [Unknown]
  - Weight gain poor [Unknown]
